FAERS Safety Report 5746009-7 (Version None)
Quarter: 2008Q2

REPORT INFORMATION
  Report Type: 
  Country: None (occurrence: None)
  Receive Date: 20080522
  Receipt Date: 20080514
  Transmission Date: 20081010
  Serious: Yes (Disabling)
  Sender: FDA-Public Use
  Company Number: HU-RANBAXY-2008RR-15221

PATIENT

DRUGS (1)
  1. KLABAX TABLETS [Suspect]
     Indication: THROAT IRRITATION
     Dosage: 500 MG, BID
     Route: 048

REACTIONS (2)
  - AGEUSIA [None]
  - ANOSMIA [None]
